FAERS Safety Report 11785486 (Version 1)
Quarter: 2015Q4

REPORT INFORMATION
  Report Type: Spontaneous
  Country: US (occurrence: US)
  Receive Date: 20151130
  Receipt Date: 20151130
  Transmission Date: 20160305
  Serious: No
  Sender: FDA-Public Use
  Company Number: US-BIOGENIDEC-2015BI154880

PATIENT
  Sex: Female

DRUGS (2)
  1. AVONEX [Suspect]
     Active Substance: INTERFERON BETA-1A
     Indication: MULTIPLE SCLEROSIS
     Route: 030
  2. PROBIOTICS [Concomitant]
     Active Substance: PROBIOTICS NOS

REACTIONS (7)
  - Mobility decreased [Unknown]
  - Pain [Unknown]
  - Scar [Not Recovered/Not Resolved]
  - Gastric disorder [Unknown]
  - Injection site atrophy [Unknown]
  - Gastrointestinal disorder [Unknown]
  - Pyrexia [Recovered/Resolved]
